FAERS Safety Report 6398202-0 (Version None)
Quarter: 2009Q4

REPORT INFORMATION
  Report Type: 
  Country: None (occurrence: None)
  Receive Date: 20091013
  Receipt Date: 20090929
  Transmission Date: 20100525
  Serious: No
  Sender: FDA-Public Use
  Company Number: PHEH2009US12510

PATIENT
  Age: 73 Year
  Sex: Female
  Weight: 64.3 kg

DRUGS (16)
  1. TASIGNA [Suspect]
     Indication: CHRONIC MYELOID LEUKAEMIA
     Dosage: 400 MG, BID
     Dates: start: 20090106
  2. ONDANSETRON [Concomitant]
  3. PROMETHAZINE [Concomitant]
  4. HYDROXYZINE [Concomitant]
  5. CELEBREX [Concomitant]
  6. HYDROXYUREA [Concomitant]
  7. LIPITOR [Concomitant]
  8. SKELAXIN [Concomitant]
  9. REQUIP [Concomitant]
  10. LEVSIN [Concomitant]
  11. MORPHINE SULFATE [Concomitant]
  12. NORVASC [Concomitant]
  13. AMITRIPTYLINE [Concomitant]
  14. OMEPRAZOLE [Concomitant]
  15. ENALAPRIL MALEATE [Concomitant]
  16. HYDROCHLOROTHIAZIDE [Concomitant]

REACTIONS (2)
  - ACNE [None]
  - WEIGHT INCREASED [None]
